FAERS Safety Report 10780306 (Version 1)
Quarter: 2015Q1

REPORT INFORMATION
  Report Type: Spontaneous
  Country: US (occurrence: US)
  Receive Date: 20150210
  Receipt Date: 20150210
  Transmission Date: 20150721
  Serious: No
  Sender: FDA-Public Use
  Company Number: US-GLAXOSMITHKLINE-A1065191A

PATIENT

DRUGS (1)
  1. NICOTINE GUM 4MG UNKNOWN BRAND MEDICATED CHEWING-GUM [Suspect]
     Active Substance: NICOTINE
     Indication: SMOKING CESSATION THERAPY
     Route: 002

REACTIONS (2)
  - Incorrect drug administration duration [Unknown]
  - Tooth discolouration [Not Recovered/Not Resolved]
